FAERS Safety Report 8528316-8 (Version None)
Quarter: 2012Q3

REPORT INFORMATION
  Report Type: 
  Country: None (occurrence: None)
  Receive Date: 20120722
  Receipt Date: 20120531
  Transmission Date: 20120928
  Serious: No
  Sender: FDA-Public Use
  Company Number: US-009507513-1207USA007017

PATIENT

DRUGS (4)
  1. MIRALAX [Suspect]
     Indication: DIVERTICULITIS
     Dosage: UNK, UNKNOWN
     Route: 048
  2. MIRALAX [Suspect]
     Indication: MEDICAL OBSERVATION
  3. VITAMINS (UNSPECIFIED) [Concomitant]
     Indication: MEDICAL OBSERVATION
     Dosage: UNK, UNKNOWN
     Route: 065
  4. VITAMINS (UNSPECIFIED) [Concomitant]
     Indication: PRODUCT USED FOR UNKNOWN INDICATION

REACTIONS (4)
  - FREQUENT BOWEL MOVEMENTS [None]
  - UNDERDOSE [None]
  - FAECES DISCOLOURED [None]
  - BOWEL MOVEMENT IRREGULARITY [None]
